FAERS Safety Report 6489060-4 (Version None)
Quarter: 2009Q4

REPORT INFORMATION
  Report Type: 
  Country: None (occurrence: None)
  Receive Date: 20091207
  Receipt Date: 20091124
  Transmission Date: 20100525
  Serious: Yes (Hospitalization)
  Sender: FDA-Public Use
  Company Number: 2009AP004716

PATIENT
  Age: 59 Year
  Sex: Female
  Weight: 71.1 kg

DRUGS (14)
  1. RISPERIDONE [Suspect]
     Indication: PSYCHOTIC DISORDER
     Dosage: 2.5 MG;QD
  2. BENAZEPRIL HYDROCHLORIDE [Suspect]
     Indication: HYPERTENSION
     Dosage: 60 MG;QD
  3. HYDROCHLOROTHIAZIDE [Suspect]
     Indication: HYPERTENSION
     Dosage: 50 MG;QD
  4. GLIPIZIDE [Suspect]
     Indication: DIABETES MELLITUS
     Dosage: 10 MG;QD
  5. RANITIDINE HYDROCHLORIDE [Suspect]
     Indication: GASTROOESOPHAGEAL REFLUX DISEASE
     Dosage: 300 MG;QD
  6. LACTULOSE [Suspect]
     Indication: CONSTIPATION
     Dosage: 30 ML;QD
  7. SIMVASTATIN [Suspect]
     Indication: HYPERLIPIDAEMIA
     Dosage: 10 MG;QD
  8. ATENOLOL [Suspect]
     Indication: HYPERTENSION
     Dosage: 50 MG;QD
  9. NIACIN [Suspect]
     Indication: HYPERLIPIDAEMIA
     Dosage: 1500 MG;QD
  10. ASPIRIN [Suspect]
     Indication: CARDIOVASCULAR EVENT PROPHYLAXIS
     Dosage: 81 MG;QD
  11. LEVOTHYROXINE SODIUM [Suspect]
     Indication: HYPOTHYROIDISM
     Dosage: 25 MG;QD
  12. BROMOCRIPTINE MESYLATE [Suspect]
     Dosage: 5 MG
  13. VALPROIC ACID SYRUP [Suspect]
     Indication: CONVULSION
     Dosage: 500 MG;BID ; 750 MG;QD ; 500 MG;QD
  14. CARBAMAZEPINE [Concomitant]

REACTIONS (14)
  - ABNORMAL BEHAVIOUR [None]
  - CONFUSIONAL STATE [None]
  - DIZZINESS [None]
  - DRUG INTERACTION [None]
  - DRUG TOXICITY [None]
  - GRAND MAL CONVULSION [None]
  - HYPERGLYCAEMIA [None]
  - HYPOTENSION [None]
  - INCOHERENT [None]
  - LETHARGY [None]
  - PERSONALITY CHANGE [None]
  - SCHIZOAFFECTIVE DISORDER [None]
  - TREMOR [None]
  - URINARY INCONTINENCE [None]
